FAERS Safety Report 15278820 (Version 2)
Quarter: 2018Q3

REPORT INFORMATION
  Report Type: Report from Study
  Country: TW (occurrence: TW)
  Receive Date: 20180815
  Receipt Date: 20180816
  Transmission Date: 20181010
  Serious: No
  Sender: FDA-Public Use
  Company Number: TW-INCYTE CORPORATION-2018IN008179

PATIENT

DRUGS (1)
  1. JAKAVI [Suspect]
     Active Substance: RUXOLITINIB
     Indication: MYELOFIBROSIS
     Dosage: 20 MG, BID (TWICE A DAY)
     Route: 048
     Dates: start: 2016

REACTIONS (4)
  - Diarrhoea [Recovering/Resolving]
  - Chest pain [Unknown]
  - Gastroenteritis [Recovering/Resolving]
  - Abdominal pain [Unknown]

NARRATIVE: CASE EVENT DATE: 20180729
